FAERS Safety Report 16034872 (Version 3)
Quarter: 2019Q1

REPORT INFORMATION
  Report Type: Spontaneous
  Country: US (occurrence: US)
  Receive Date: 20190305
  Receipt Date: 20190314
  Transmission Date: 20190418
  Serious: No
  Sender: FDA-Public Use
  Company Number: US-PFIZER INC-2019092461

PATIENT
  Age: 37 Year

DRUGS (1)
  1. DILANTIN [Suspect]
     Active Substance: PHENYTOIN
     Dosage: 400 MG (TAKE 4), DAILY

REACTIONS (4)
  - Limb injury [Unknown]
  - Gait disturbance [Unknown]
  - Depressed mood [Unknown]
  - Fall [Unknown]
